FAERS Safety Report 16650201 (Version 1)
Quarter: 2019Q3

REPORT INFORMATION
  Report Type: Report from Study
  Country: US (occurrence: US)
  Receive Date: 20190731
  Receipt Date: 20190731
  Transmission Date: 20191004
  Serious: Yes (Other)
  Sender: FDA-Public Use
  Company Number: US-ROCHE-2016076

PATIENT
  Sex: Male
  Weight: 48.1 kg

DRUGS (8)
  1. PRINIVIL [Concomitant]
     Active Substance: LISINOPRIL
     Route: 048
  2. DELTASONE [Concomitant]
     Active Substance: PREDNISONE
     Route: 048
  3. ARAVA [Concomitant]
     Active Substance: LEFLUNOMIDE
     Route: 048
  4. NUTROPIN AQ [Suspect]
     Active Substance: SOMATROPIN
     Indication: GROWTH HORMONE DEFICIENCY
     Dosage: NUSPIN 10
     Route: 058
     Dates: start: 201310
  5. ZESTRIL [Concomitant]
     Active Substance: LISINOPRIL
     Route: 048
  6. NUTROPIN AQ [Suspect]
     Active Substance: SOMATROPIN
     Indication: END STAGE RENAL DISEASE
  7. RAPAMUNE [Concomitant]
     Active Substance: SIROLIMUS
     Route: 048
  8. VITAMIN D3 [Concomitant]
     Active Substance: CHOLECALCIFEROL
     Dosage: 2 CAPSULES
     Route: 048

REACTIONS (20)
  - Diarrhoea [Unknown]
  - Blood chloride increased [Unknown]
  - Protein urine present [Unknown]
  - Urine protein/creatinine ratio increased [Unknown]
  - Carbon dioxide decreased [Unknown]
  - Blood creatinine increased [Unknown]
  - Red cell distribution width increased [Unknown]
  - Growth retardation [Unknown]
  - Haematocrit decreased [Unknown]
  - Mean cell haemoglobin concentration decreased [Unknown]
  - Neutropenia [Unknown]
  - Red blood cell count decreased [Unknown]
  - Blood urea increased [Unknown]
  - Mean platelet volume decreased [Unknown]
  - Blood glucose increased [Unknown]
  - Encopresis [Unknown]
  - Mean cell volume decreased [Unknown]
  - Haemoglobin decreased [Unknown]
  - Neutrophil count decreased [Unknown]
  - Visual impairment [Unknown]
